FAERS Safety Report 12810102 (Version 5)
Quarter: 2016Q4

REPORT INFORMATION
  Report Type: Spontaneous
  Country: US (occurrence: US)
  Receive Date: 20161005
  Receipt Date: 20161109
  Transmission Date: 20170207
  Serious: Yes (Hospitalization)
  Sender: FDA-Public Use
  Company Number: US-PFIZER INC-2016463057

PATIENT
  Age: 65 Year
  Sex: Female

DRUGS (4)
  1. GABAPENTIN. [Suspect]
     Active Substance: GABAPENTIN
     Dosage: 200 MG, 1X/DAY (100 MG 2 AT BEDTIME)
     Dates: start: 201606
  2. GABAPENTIN. [Suspect]
     Active Substance: GABAPENTIN
     Dosage: UNK, 2X/DAY (2 AT BEDTIME + ONE IN THE MORNING)
     Dates: end: 20161018
  3. GABAPENTIN. [Suspect]
     Active Substance: GABAPENTIN
     Dosage: UNK
  4. GABAPENTIN. [Suspect]
     Active Substance: GABAPENTIN
     Indication: MIGRAINE
     Dosage: 3 DF, DAILY (2 AT BEDTIME + ONE IN THE MORNING)
     Dates: start: 20160616

REACTIONS (5)
  - Vision blurred [Not Recovered/Not Resolved]
  - Asthenopia [Unknown]
  - Eyelid disorder [Unknown]
  - Eye pain [Unknown]
  - Product use issue [Not Recovered/Not Resolved]

NARRATIVE: CASE EVENT DATE: 20160629
